FAERS Safety Report 18250711 (Version 1)
Quarter: 2020Q3

REPORT INFORMATION
  Report Type: Spontaneous
  Country: US (occurrence: US)
  Receive Date: 20200909
  Receipt Date: 20200909
  Transmission Date: 20201103
  Serious: Yes (Disabling, Other)
  Sender: FDA-Public Use
  Company Number: US-PURDUE-USA-2020-0165336

PATIENT
  Sex: Male

DRUGS (2)
  1. OXY.IR [Suspect]
     Active Substance: OXYCODONE HYDROCHLORIDE
     Indication: PRODUCT USED FOR UNKNOWN INDICATION
     Route: 048
  2. OXYCONTIN [Suspect]
     Active Substance: OXYCODONE HYDROCHLORIDE
     Indication: PRODUCT USED FOR UNKNOWN INDICATION
     Route: 048

REACTIONS (7)
  - Dependence [Unknown]
  - Somatic symptom disorder [Unknown]
  - Illness anxiety disorder [Unknown]
  - Overdose [Unknown]
  - Disability [Unknown]
  - Road traffic accident [Unknown]
  - Drug abuse [Unknown]
